FAERS Safety Report 21675217 (Version 1)
Quarter: 2022Q4

REPORT INFORMATION
  Report Type: Spontaneous
  Country: GB (occurrence: None)
  Receive Date: 20221202
  Receipt Date: 20221202
  Transmission Date: 20230113
  Serious: Yes (Disabling)
  Sender: FDA-Public Use
  Company Number: 2022A389744

PATIENT
  Age: 78 Year
  Sex: Female
  Weight: 83 kg

DRUGS (14)
  1. DAPAGLIFLOZIN [Suspect]
     Active Substance: DAPAGLIFLOZIN
     Route: 065
     Dates: start: 20221101
  2. INFLUENZA VIRUS VACCINE [Concomitant]
     Active Substance: INFLUENZA VIRUS VACCINE
     Dates: start: 20221008, end: 20221009
  3. ANASTROZOLE [Concomitant]
     Active Substance: ANASTROZOLE
     Dosage: AS PREVIOUSLY ADVISED
     Dates: start: 20220210
  4. ASACOL [Concomitant]
     Active Substance: MESALAMINE
     Dosage: AS PREVIOUSLY ADVISED
     Dates: start: 20220210
  5. BISOPROLOL [Concomitant]
     Active Substance: BISOPROLOL
     Dosage: ONE TABLET DAILY IN ADDITION TO EXISTING 2.5MG, 1 EVERY DAY
     Dates: start: 20220711
  6. TIOTROPIUM BROMIDE [Concomitant]
     Active Substance: TIOTROPIUM BROMIDE
     Dosage: INHALE THE CONTENTS OF ONE CAPSULE ONCE DAILY, 1 EVERY DAY
     Route: 055
     Dates: start: 20220210
  7. MINERAL OIL\PETROLATUM\WAX, EMULSIFYING [Concomitant]
     Active Substance: MINERAL OIL\PETROLATUM\WAX, EMULSIFYING
     Dosage: USE AS DIRECTED
     Dates: start: 20220210
  8. FENBID [Concomitant]
     Dosage: 1 THREE TIMES A DAY
     Dates: start: 20220303, end: 20221006
  9. FUROSEMIDE [Concomitant]
     Active Substance: FUROSEMIDE
     Dosage: IN THE MORNING, 1 EVERY DAY
     Dates: start: 20220210
  10. GABAPENTIN [Concomitant]
     Active Substance: GABAPENTIN
     Dosage: TAKE ONE CAPSULE THREE TIMES PER DAY, INCREASIN.
     Dates: start: 20220218
  11. IBUPROFEN [Concomitant]
     Active Substance: IBUPROFEN
     Dosage: APPLY 3-4 TIMES/DAY
     Dates: start: 20221006
  12. ACETAMINOPHEN [Concomitant]
     Active Substance: ACETAMINOPHEN
     Dosage: 2
     Dates: start: 20220210
  13. SACUBITRIL [Concomitant]
     Active Substance: SACUBITRIL
     Dosage: TAKE ONE TABLET TWICE A DAY FOR TREATING HEART, 1 TWO TIMES A DAY
     Dates: start: 20220905
  14. SPIRONOLACTONE [Concomitant]
     Active Substance: SPIRONOLACTONE
     Dosage: AS PREVIOUSLY ADVISED
     Dates: start: 20220511

REACTIONS (2)
  - Nausea [Recovered/Resolved]
  - Vomiting [Recovered/Resolved]
